FAERS Safety Report 8669952 (Version 5)
Quarter: 2013Q2

REPORT INFORMATION
  Report Type: Report from Study
  Country: US (occurrence: US)
  Receive Date: 20120718
  Receipt Date: 20130510
  Transmission Date: 20140414
  Serious: Yes (Hospitalization)
  Sender: FDA-Public Use
  Company Number: US-AMGEN-USACT2012040997

PATIENT
  Age: 49 Year
  Sex: Female
  Weight: 82.73 kg

DRUGS (23)
  1. DENOSUMAB [Suspect]
     Indication: BREAST CANCER
     Dosage: UNK
     Dates: start: 20120502
  2. NEULASTA [Concomitant]
     Dosage: 6 MG, UNK
     Route: 058
     Dates: start: 20120327, end: 20120725
  3. CYCLOPHOSPHAMIDE [Concomitant]
     Indication: BREAST CANCER
     Dosage: UNK
     Dates: start: 20120403, end: 20120515
  4. ADRIAMYCIN [Concomitant]
     Indication: BREAST CANCER
     Dosage: UNK
     Dates: start: 20120403, end: 20120515
  5. CALCIUM [Concomitant]
     Dosage: 500 MG, UNK
     Route: 048
     Dates: start: 20120502
  6. VITAMIN D [Concomitant]
     Dosage: 400 IU, UNK
     Route: 048
     Dates: start: 20120502
  7. CAPHOSOL [Concomitant]
     Dosage: 30 ML, UNK
     Route: 050
     Dates: start: 20120412, end: 20120731
  8. METFORMIN [Concomitant]
     Indication: DIABETES MELLITUS
     Dosage: 500 MG, UNK
     Route: 048
     Dates: start: 20120308
  9. TRAZAMINE [Concomitant]
     Dosage: 50 MG, UNK
     Route: 048
     Dates: start: 20120308
  10. LORATADINE [Concomitant]
     Dosage: 10 MG, UNK
     Route: 048
     Dates: start: 20120619, end: 20120814
  11. CITALOPRAM [Concomitant]
     Dosage: 20 MUG, UNK
     Route: 048
     Dates: start: 20120612
  12. MAGNESIUM HYDROXIDE [Concomitant]
     Dosage: UNK
     Route: 048
     Dates: start: 20120502
  13. LOPERAMIDE HYDROCHLORIDE [Concomitant]
     Dosage: 2 MG, UNK
     Route: 048
     Dates: start: 20120502
  14. IBUPROFEN [Concomitant]
     Dosage: UNK
     Route: 048
     Dates: start: 20120619
  15. AMARYL [Concomitant]
     Indication: DIABETES MELLITUS
     Dosage: 4 MG, UNK
     Route: 048
     Dates: start: 20100601
  16. COREG [Concomitant]
     Dosage: 25 MG, UNK
     Route: 048
     Dates: start: 20120515, end: 20120821
  17. WITCH HAZEL [Concomitant]
     Dosage: 2 GTT, UNK
     Route: 050
     Dates: start: 20000615, end: 20130405
  18. PRINIVIL [Concomitant]
     Dosage: 5 MG, UNK
     Route: 048
     Dates: start: 20110601, end: 20120501
  19. LOVASTATIN [Concomitant]
     Indication: HYPERLIPIDAEMIA
     Route: 048
     Dates: start: 20100601, end: 20120731
  20. ATIVAN [Concomitant]
     Dosage: 1 MG, UNK
     Route: 048
     Dates: start: 20120501
  21. NEXIUM [Concomitant]
     Dosage: 40 MG, UNK
     Route: 048
     Dates: start: 20120529
  22. PRILOSEC [Concomitant]
     Dosage: 20 MG, UNK
     Route: 048
     Dates: start: 20070601, end: 20120612
  23. TAXOL [Concomitant]
     Dosage: UNK
     Dates: start: 20120529, end: 20120724

REACTIONS (1)
  - Pyelonephritis acute [Recovered/Resolved]
